FAERS Safety Report 17641345 (Version 1)
Quarter: 2020Q2

REPORT INFORMATION
  Report Type: Spontaneous
  Country: EG (occurrence: EG)
  Receive Date: 20200407
  Receipt Date: 20200407
  Transmission Date: 20200713
  Serious: Yes (Hospitalization, Other)
  Sender: FDA-Public Use
  Company Number: NVSC2020EG094186

PATIENT

DRUGS (1)
  1. DICLOFENAC [Suspect]
     Active Substance: DICLOFENAC
     Indication: PRODUCT USED FOR UNKNOWN INDICATION
     Dosage: UNK
     Route: 065

REACTIONS (9)
  - Hepatitis cholestatic [Unknown]
  - Portal tract inflammation [Unknown]
  - Drug-induced liver injury [Unknown]
  - Cholestasis [Unknown]
  - Hepatic lymphocytic infiltration [Unknown]
  - Hepatic necrosis [Unknown]
  - Autoimmune hepatitis [Unknown]
  - Hepatic infiltration eosinophilic [Unknown]
  - Hepatocellular injury [Unknown]
